FAERS Safety Report 5904788-X (Version None)
Quarter: 2008Q4

REPORT INFORMATION
  Report Type: 
  Country: None (occurrence: None)
  Receive Date: 20081001
  Receipt Date: 20080922
  Transmission Date: 20090506
  Serious: Yes (Hospitalization, Other)
  Sender: FDA-Public Use
  Company Number: US-MERCK-0605USA03990

PATIENT
  Age: 71 Year
  Sex: Female
  Weight: 83 kg

DRUGS (4)
  1. FOSAMAX [Suspect]
     Indication: OSTEOPOROSIS
     Route: 048
     Dates: start: 20020301, end: 20060401
  2. PRAVACHOL [Concomitant]
     Route: 065
     Dates: start: 20011031
  3. MAXZIDE [Concomitant]
     Route: 065
     Dates: start: 20010317
  4. [THERAPY UNSPECIFIED] [Concomitant]
     Indication: RHEUMATOID ARTHRITIS
     Route: 065
     Dates: start: 20010606

REACTIONS (14)
  - ABSCESS NECK [None]
  - ADVERSE DRUG REACTION [None]
  - CELLULITIS [None]
  - CONSTIPATION [None]
  - CORONARY ARTERY DISEASE [None]
  - EAR PAIN [None]
  - FACIAL PAIN [None]
  - GASTROINTESTINAL DISORDER [None]
  - HAEMORRHOIDS [None]
  - HYPERLIPIDAEMIA [None]
  - NEUROPATHY PERIPHERAL [None]
  - OSTEOMYELITIS [None]
  - OSTEONECROSIS [None]
  - TOOTHACHE [None]
